FAERS Safety Report 4436729-9 (Version None)
Quarter: 2004Q3

REPORT INFORMATION
  Report Type: 
  Country: None (occurrence: None)
  Receive Date: 20040728
  Receipt Date: 20030818
  Transmission Date: 20050211
  Serious: Yes (Life-Threatening, Hospitalization)
  Sender: FDA-Public Use
  Company Number: 201993

PATIENT
  Age: 77 Year
  Sex: Male

DRUGS (11)
  1. RITUXAN [Suspect]
     Indication: NON-HODGKIN'S LYMPHOMA
     Dosage: 735 MG, SINGLE, INTRAVENOUS
     Route: 042
     Dates: start: 20030818
  2. SOLU-MEDROL [Concomitant]
  3. TYLENOL [Concomitant]
  4. PREDNISONE [Concomitant]
  5. PRILOSEC [Concomitant]
  6. TIAZAC (DILTIAZEM HYDROCHLOROTHIAZIDE) [Concomitant]
  7. ZESTORETIC [Concomitant]
  8. MOBIC [Concomitant]
  9. ASPIRIN [Concomitant]
  10. K-DUR 10 [Concomitant]
  11. RITUXAN [Suspect]

REACTIONS (4)
  - COLD SWEAT [None]
  - HYPOTENSION [None]
  - STRIDOR [None]
  - SYNCOPE [None]
